FAERS Safety Report 8325057-7 (Version None)
Quarter: 2012Q2

REPORT INFORMATION
  Report Type: 
  Country: None (occurrence: None)
  Receive Date: 20120501
  Receipt Date: 20120423
  Transmission Date: 20120825
  Serious: Yes (Other)
  Sender: FDA-Public Use
  Company Number: DK-ASTRAZENECA-2012SE26277

PATIENT
  Age: 22 Year
  Sex: Male
  Weight: 57 kg

DRUGS (1)
  1. SEROQUEL [Suspect]
     Indication: SLEEP DISORDER
     Dosage: DOSE 400, 600 MG, STRENGTH: 400 TO 600 MG
     Route: 048
     Dates: start: 20111101

REACTIONS (12)
  - DRY EYE [None]
  - BLOOD PRESSURE DECREASED [None]
  - VISUAL IMPAIRMENT [None]
  - VISION BLURRED [None]
  - NIGHTMARE [None]
  - SUICIDAL IDEATION [None]
  - RESTLESSNESS [None]
  - EATING DISORDER [None]
  - ASTHENOPIA [None]
  - DIZZINESS [None]
  - DYSKINESIA [None]
  - WEIGHT INCREASED [None]
